FAERS Safety Report 20432844 (Version 1)
Quarter: 2022Q1

REPORT INFORMATION
  Report Type: Spontaneous
  Country: US (occurrence: US)
  Receive Date: 20220205
  Receipt Date: 20220205
  Transmission Date: 20220423
  Serious: No
  Sender: FDA-Public Use
  Company Number: US-JNJFOC-20220151405

PATIENT
  Age: 82 Year
  Sex: Female

DRUGS (1)
  1. ZYRTEC [Suspect]
     Active Substance: CETIRIZINE HYDROCHLORIDE
     Indication: Rhinorrhoea
     Dosage: ONCE A DAYS AND SOMETIMES TWO
     Route: 065

REACTIONS (2)
  - Dry mouth [Unknown]
  - Overdose [Unknown]

NARRATIVE: CASE EVENT DATE: 20210101
